FAERS Safety Report 4477955-2 (Version None)
Quarter: 2004Q4

REPORT INFORMATION
  Report Type: 
  Country: None (occurrence: None)
  Receive Date: 20041012
  Receipt Date: 20040929
  Transmission Date: 20050328
  Serious: Yes (Death, Hospitalization)
  Sender: FDA-Public Use
  Company Number: WSDF_00451

PATIENT
  Age: 68 Year
  Sex: Male

DRUGS (1)
  1. WINRHO SDF [Suspect]
     Indication: IDIOPATHIC THROMBOCYTOPENIC PURPURA
     Dates: start: 20040924, end: 20040924

REACTIONS (3)
  - BLOOD PRESSURE DECREASED [None]
  - CARDIAC FAILURE [None]
  - REFUSAL OF TREATMENT BY PATIENT [None]
